FAERS Safety Report 9368851 (Version 1)
Quarter: 2013Q2

REPORT INFORMATION
  Report Type: Spontaneous
  Country: US (occurrence: US)
  Receive Date: 20130626
  Receipt Date: 20130626
  Transmission Date: 20140414
  Serious: Yes (Hospitalization)
  Sender: FDA-Public Use
  Company Number: US-AMGEN-USASP2013044385

PATIENT
  Age: 61 Year
  Sex: Female

DRUGS (2)
  1. ENBREL [Suspect]
     Indication: RHEUMATOID ARTHRITIS
     Dosage: 25 MG, 2 TIMES/WK,MUV
     Route: 065
     Dates: start: 19981217
  2. ORENCIA [Concomitant]
     Dosage: UNK

REACTIONS (3)
  - Vascular graft [Recovered/Resolved]
  - Pneumonia [Recovered/Resolved]
  - Adverse event [Unknown]
